FAERS Safety Report 11063778 (Version 1)
Quarter: 2015Q2

REPORT INFORMATION
  Report Type: Spontaneous
  Country: US (occurrence: US)
  Receive Date: 20150424
  Receipt Date: 20150424
  Transmission Date: 20150821
  Serious: No
  Sender: FDA-Public Use
  Company Number: US-TARO-2014TAR00079

PATIENT
  Age: 64 Year
  Sex: Male
  Weight: 77.98 kg

DRUGS (5)
  1. FLUOROURACIL TOPICAL CREAM USP 5% [Suspect]
     Active Substance: FLUOROURACIL
     Dosage: UNK UNK, 2X/DAY
     Route: 061
     Dates: start: 201405
  2. UNSPECIFIED PILL FOR THROAT [Concomitant]
     Dosage: UNK, 1X/DAY
  3. FLUOROURACIL TOPICAL CREAM USP 5% [Suspect]
     Active Substance: FLUOROURACIL
     Dosage: UNK %, 2X/DAY
     Route: 061
     Dates: start: 20140615, end: 20140620
  4. UNSPECIFIIED GOUT PILL [Concomitant]
     Dosage: UNK, 1X/DAY
  5. BLOOD PRESSURE PILLS (UNSPECIFIED) [Concomitant]
     Dosage: UNK, 1X/DAY

REACTIONS (5)
  - Rash papular [Recovered/Resolved]
  - Application site pruritus [Recovering/Resolving]
  - Application site rash [Recovered/Resolved]
  - Application site erythema [Recovered/Resolved]
  - Pruritus [Recovered/Resolved]

NARRATIVE: CASE EVENT DATE: 201405
